FAERS Safety Report 16645601 (Version 3)
Quarter: 2019Q3

REPORT INFORMATION
  Report Type: Spontaneous
  Country: US (occurrence: US)
  Receive Date: 20190730
  Receipt Date: 20190809
  Transmission Date: 20191004
  Serious: Yes (Other)
  Sender: FDA-Public Use
  Company Number: US-AMGEN-USASP2019118914

PATIENT
  Age: 73 Year
  Sex: Female
  Weight: 75.74 kg

DRUGS (1)
  1. PROLIA [Suspect]
     Active Substance: DENOSUMAB
     Indication: OSTEOPOROSIS
     Dosage: 60 MILLIGRAM/1 DOSE
     Route: 030
     Dates: start: 201903

REACTIONS (4)
  - Stomatitis [Recovered/Resolved]
  - Throat tightness [Recovered/Resolved]
  - Incorrect route of product administration [Unknown]
  - Cheilitis [Recovered/Resolved]

NARRATIVE: CASE EVENT DATE: 20190312
